FAERS Safety Report 5819077-1 (Version None)
Quarter: 2008Q3

REPORT INFORMATION
  Report Type: 
  Country: None (occurrence: None)
  Receive Date: 20080721
  Receipt Date: 20080721
  Transmission Date: 20090109
  Serious: Yes (Other)
  Sender: FDA-Public Use
  Company Number: None

PATIENT
  Age: 28 Year
  Sex: Female
  Weight: 74.8435 kg

DRUGS (2)
  1. CIPROFLOXACIN HCL [Suspect]
     Indication: URINARY TRACT INFECTION
     Dosage: 1 TABLET CAN'T REMEMBER PO FOR 7 OR 10 DAYS
     Route: 048
     Dates: start: 20071201
  2. AMOXICILLIN + CLAVULANATE POTASSIUM [Suspect]
     Indication: SINUSITIS
     Dosage: 1 TABLE CAN'T REMEMBER PO 1 OR 10 DAYS
     Route: 048
     Dates: start: 20080401

REACTIONS (1)
  - TENDON RUPTURE [None]
